FAERS Safety Report 5628673-6 (Version None)
Quarter: 2008Q1

REPORT INFORMATION
  Report Type: 
  Country: None (occurrence: None)
  Receive Date: 20080214
  Receipt Date: 20080214
  Transmission Date: 20080703
  Serious: Yes (Other)
  Sender: FDA-Public Use
  Company Number: None

PATIENT
  Age: 61 Year
  Sex: Female

DRUGS (1)
  1. DURAGESIC-50 [Suspect]
     Indication: PAIN
     Dosage: 5 MG FENTANYL AND 0.2ML ALCOHO 72 HOURS TRANSDERMAL
     Route: 062
     Dates: start: 20080122, end: 20080213

REACTIONS (6)
  - ABDOMINAL PAIN UPPER [None]
  - CHILLS [None]
  - DIZZINESS [None]
  - PRURITUS [None]
  - PYREXIA [None]
  - VOMITING [None]
